FAERS Safety Report 9586630 (Version 1)
Quarter: 2013Q4

REPORT INFORMATION
  Report Type: Spontaneous
  Country: US (occurrence: US)
  Receive Date: 20131003
  Receipt Date: 20131003
  Transmission Date: 20140711
  Serious: Yes (Hospitalization)
  Sender: FDA-Public Use
  Company Number: US-B.I. PHARMACEUTICALS,INC./RIDGEFIELD-2013-BI-30514BP

PATIENT
  Sex: Female

DRUGS (17)
  1. ZANTAC (RANITIDINE HYDROCHLORIDE) [Suspect]
     Dosage: 150 MG
  2. MSIR [Concomitant]
     Dosage: 120 MG
  3. ALBUTEROL [Concomitant]
     Dosage: 0.083% SOLUTION
  4. DEXEDRINE [Concomitant]
     Dosage: 20 MG
  5. SIMVASTATIN [Concomitant]
     Dosage: 40 MG
  6. ESTRACE [Concomitant]
     Dosage: 1 G
     Route: 067
  7. BUDESONIDE [Concomitant]
     Dosage: 0.5 MG/ML DAILY DOSE :4 ML
  8. PERFOROMIST [Concomitant]
     Dosage: DOSE PER APPLICATION: 20 MCG/ 2 ML SOLUTION DAILY DOSE 2 ML
  9. PREDNISONE [Concomitant]
     Dosage: DAILY DOSE:40MG,30 MG, 20 MG, 10 MGX 5 DAYS
  10. FLONASE [Concomitant]
     Dosage: FORMULATION: INHALATION SPRAY: 1 SPRAY
  11. DIFLUCAN [Concomitant]
     Dosage: 100 MG
  12. ZOFRAN [Concomitant]
     Dosage: 12 MG
  13. CARAFATE [Concomitant]
     Dosage: 4 MG
  14. TIZANIDINE [Concomitant]
     Dosage: DOSE PER APPLICATIONM:2 TABLETS( 4 MG)
  15. XOPENEX [Concomitant]
  16. ADVAIR HFA CFC [Concomitant]
     Dosage: 4 PUF
  17. LIBRAX [Concomitant]
     Dosage: DOSE PER APPLICATION: 5 MG-2.5 MG ; DALIY DOSE:1-2 CAPS

REACTIONS (1)
  - Chronic obstructive pulmonary disease [Unknown]
